FAERS Safety Report 8816315 (Version 1)
Quarter: 2012Q4

REPORT INFORMATION
  Report Type: Spontaneous
  Country: US (occurrence: None)
  Receive Date: 20120927
  Receipt Date: 20120927
  Transmission Date: 20130627
  Serious: No
  Sender: FDA-Public Use
  Company Number: None

PATIENT
  Age: 42 Year
  Sex: Female
  Weight: 57.61 kg

DRUGS (2)
  1. CYMBALTA [Suspect]
     Indication: ANXIETY
     Dosage: 60 mg once a day
     Dates: start: 20010619, end: 20120915
  2. CYMBALTA [Suspect]
     Indication: PANIC DISORDER/ DEPRESSION
     Dosage: 60 mg once a day
     Dates: start: 20010619, end: 20120915

REACTIONS (13)
  - Personality change [None]
  - Anxiety [None]
  - Panic attack [None]
  - Migraine [None]
  - Depression [None]
  - Hostility [None]
  - Anger [None]
  - Mood swings [None]
  - Nightmare [None]
  - Headache [None]
  - Job dissatisfaction [None]
  - Pain [None]
  - Fear [None]
